FAERS Safety Report 9421462 (Version 1)
Quarter: 2013Q3

REPORT INFORMATION
  Report Type: Spontaneous
  Country: US (occurrence: US)
  Receive Date: 20130726
  Receipt Date: 20130726
  Transmission Date: 20140515
  Serious: Yes (Other)
  Sender: FDA-Public Use
  Company Number: US-ASTRAZENECA-2013SE55207

PATIENT
  Sex: Female

DRUGS (2)
  1. ARIMIDEX [Suspect]
     Route: 048
  2. ARIMIDEX [Suspect]
     Dosage: GENERIC
     Route: 065

REACTIONS (1)
  - Macular degeneration [Unknown]
